FAERS Safety Report 10157631 (Version 3)
Quarter: 2014Q2

REPORT INFORMATION
  Report Type: Spontaneous
  Country: US (occurrence: US)
  Receive Date: 20140507
  Receipt Date: 20140627
  Transmission Date: 20141212
  Serious: Yes (Other)
  Sender: FDA-Public Use
  Company Number: US-PFIZER INC-2014123786

PATIENT
  Age: 47 Year
  Sex: Female
  Weight: 61.2 kg

DRUGS (4)
  1. LIPITOR [Suspect]
     Indication: LOW DENSITY LIPOPROTEIN INCREASED
     Dosage: 10 MG, UNK
     Route: 048
     Dates: start: 200608, end: 200911
  2. LIPITOR [Suspect]
     Indication: CARDIOVASCULAR EVENT PROPHYLAXIS
  3. LIPITOR [Suspect]
     Indication: BLOOD CHOLESTEROL INCREASED
  4. BENADRYL [Concomitant]
     Indication: NASOPHARYNGITIS
     Dosage: UNK
     Dates: start: 1994

REACTIONS (1)
  - Type 2 diabetes mellitus [Not Recovered/Not Resolved]
